FAERS Safety Report 25123127 (Version 1)
Quarter: 2025Q1

REPORT INFORMATION
  Report Type: Spontaneous
  Country: US (occurrence: US)
  Receive Date: 20250326
  Receipt Date: 20250326
  Transmission Date: 20250408
  Serious: No
  Sender: GRIFOLS
  Company Number: US-IGSA-SR10009525

PATIENT
  Sex: Female
  Weight: 65 kg

DRUGS (9)
  1. PROLASTIN-C LIQUID [Suspect]
     Active Substance: .ALPHA.1-PROTEINASE INHIBITOR HUMAN
     Indication: Alpha-1 antitrypsin deficiency
     Dosage: 3900 MG, Q.WK.
     Route: 042
     Dates: start: 20190628
  2. MONTELUKAST [Concomitant]
     Active Substance: MONTELUKAST
  3. PROLIA [Concomitant]
     Active Substance: DENOSUMAB
  4. BREO ELLIPTA [Concomitant]
     Active Substance: FLUTICASONE FUROATE\VILANTEROL TRIFENATATE
  5. PROAIR                             /00139502/ [Concomitant]
  6. CYCLOBENZAPRINE [Concomitant]
     Active Substance: CYCLOBENZAPRINE
  7. DULOXETINE [Concomitant]
     Active Substance: DULOXETINE
  8. ALPRAZOLAM [Concomitant]
     Active Substance: ALPRAZOLAM
  9. NASONEX [Concomitant]
     Active Substance: MOMETASONE FUROATE

REACTIONS (6)
  - Oxygen saturation increased [Recovering/Resolving]
  - Pain [Recovering/Resolving]
  - Back pain [Recovering/Resolving]
  - Malaise [Recovering/Resolving]
  - Chest discomfort [Recovering/Resolving]
  - Dyspnoea [Recovering/Resolving]

NARRATIVE: CASE EVENT DATE: 20190101
